FAERS Safety Report 17796859 (Version 2)
Quarter: 2020Q2

REPORT INFORMATION
  Report Type: Spontaneous
  Country: US (occurrence: US)
  Receive Date: 20200518
  Receipt Date: 20200617
  Transmission Date: 20200714
  Serious: Yes (Death)
  Sender: FDA-Public Use
  Company Number: US-ROCHE-2601131

PATIENT
  Age: 55 Year
  Sex: Male

DRUGS (1)
  1. ERIVEDGE [Suspect]
     Active Substance: VISMODEGIB
     Indication: EMBOLISM VENOUS
     Dosage: 150 MG  DAILY BY MOUTH
     Route: 048
     Dates: start: 20190514

REACTIONS (3)
  - Death [Fatal]
  - Off label use [Unknown]
  - Intentional product use issue [Unknown]

NARRATIVE: CASE EVENT DATE: 20200403
